FAERS Safety Report 17163934 (Version 6)
Quarter: 2020Q1

REPORT INFORMATION
  Report Type: Report from Study
  Country: JP (occurrence: JP)
  Receive Date: 20191217
  Receipt Date: 20200310
  Transmission Date: 20200409
  Serious: Yes (Hospitalization)
  Sender: FDA-Public Use
  Company Number: JP-EISAI MEDICAL RESEARCH-EC-2019-067087

PATIENT
  Age: 74 Year
  Sex: Male
  Weight: 65 kg

DRUGS (15)
  1. LASIX [Concomitant]
     Active Substance: FUROSEMIDE
  2. ARGAMATE [Concomitant]
     Active Substance: CALCIUM POLYSTYRENE SULFONATE
  3. AMINOLEBAN EN [Concomitant]
     Active Substance: UNSPECIFIED INGREDIENT
  4. VEGIN [Concomitant]
  5. NOVORAPID [Concomitant]
     Active Substance: INSULIN ASPART
  6. RABEPRAZOLE [Concomitant]
     Active Substance: RABEPRAZOLE
     Route: 048
  7. FEBURIC [Concomitant]
     Active Substance: FEBUXOSTAT
  8. LENVIMA [Suspect]
     Active Substance: LENVATINIB
     Route: 048
     Dates: start: 20190122, end: 20190124
  9. ALDACTONE [Concomitant]
     Active Substance: SPIRONOLACTONE
  10. TSUMURA JUZENTAIHOTO [Concomitant]
  11. FERROUS CITRATE [Concomitant]
     Active Substance: FERROUS CITRATE
  12. AZILVA [Concomitant]
     Active Substance: AZILSARTAN KAMEDOXOMIL
  13. LENVIMA [Suspect]
     Active Substance: LENVATINIB
     Indication: HEPATOCELLULAR CARCINOMA
     Route: 048
     Dates: start: 20181227, end: 20190112
  14. ADALAT CC [Concomitant]
     Active Substance: NIFEDIPINE
  15. BAYASPIRIN [Concomitant]
     Active Substance: ASPIRIN

REACTIONS (1)
  - Ascites [Not Recovered/Not Resolved]

NARRATIVE: CASE EVENT DATE: 20190112
